FAERS Safety Report 16978049 (Version 1)
Quarter: 2019Q4

REPORT INFORMATION
  Report Type: Spontaneous
  Country: US (occurrence: US)
  Receive Date: 20190914
  Receipt Date: 20190914
  Transmission Date: 20200122
  Serious: Yes (Death, Hospitalization)
  Sender: FDA-Public Use
  Company Number: None

PATIENT
  Age: 18 Year
  Sex: Male
  Weight: 78.3 kg

DRUGS (4)
  1. MITOXANTRONE HYDROCHLORIDE. [Suspect]
     Active Substance: MITOXANTRONE HYDROCHLORIDE
     Dates: end: 20190825
  2. VINCRISTINE SULFATE. [Suspect]
     Active Substance: VINCRISTINE SULFATE
     Dates: end: 20190907
  3. DEXAMETHASONE. [Suspect]
     Active Substance: DEXAMETHASONE
     Dates: end: 20190908
  4. ONCASPAR [Suspect]
     Active Substance: PEGASPARGASE
     Dates: end: 20190826

REACTIONS (12)
  - Antimicrobial susceptibility test sensitive [None]
  - General physical health deterioration [None]
  - Renal failure [None]
  - Multiple organ dysfunction syndrome [None]
  - Febrile neutropenia [None]
  - Anal ulcer [None]
  - Pulpitis dental [None]
  - Septic shock [None]
  - Left ventricular dysfunction [None]
  - Escherichia sepsis [None]
  - Oral discomfort [None]
  - Antimicrobial susceptibility test resistant [None]

NARRATIVE: CASE EVENT DATE: 20190909
